FAERS Safety Report 23397028 (Version 2)
Quarter: 2024Q1

REPORT INFORMATION
  Report Type: Report from Study
  Country: CA (occurrence: CA)
  Receive Date: 20240112
  Receipt Date: 20240116
  Transmission Date: 20240410
  Serious: Yes (Other)
  Sender: FDA-Public Use
  Company Number: CA-SANDOZ-SDZ2024CA000364

PATIENT
  Sex: Female

DRUGS (2)
  1. ERELZI [Suspect]
     Active Substance: ETANERCEPT-SZZS
     Indication: Rheumatoid arthritis
     Dosage: 50 MG
     Route: 058
     Dates: start: 20231231
  2. ETANERCEPT [Concomitant]
     Active Substance: ETANERCEPT
     Indication: Product used for unknown indication
     Route: 065

REACTIONS (11)
  - Renal failure [Unknown]
  - Seizure [Recovering/Resolving]
  - Nausea [Unknown]
  - Productive cough [Unknown]
  - Therapeutic product effect delayed [Unknown]
  - Blood pressure systolic increased [Unknown]
  - Extrasystoles [Unknown]
  - Chills [Unknown]
  - Palpitations [Unknown]
  - Pain [Unknown]
  - Product dose omission issue [Unknown]
